FAERS Safety Report 5205407-0 (Version None)
Quarter: 2006Q4

REPORT INFORMATION
  Report Type: 
  Country: None (occurrence: None)
  Receive Date: 20061027
  Receipt Date: 20060920
  Transmission Date: 20070319
  Serious: No
  Sender: FDA-Public Use
  Company Number: 200617971US

PATIENT
  Age: 36 Year
  Sex: Female

DRUGS (2)
  1. KETEK [Suspect]
     Indication: UPPER RESPIRATORY TRACT INFECTION
     Dosage: 2X400 MG QD PO
     Route: 048
     Dates: start: 20060920, end: 20060920
  2. ETHINYLESTRADIOL, ETONOGESTREL (NUVARING) [Concomitant]

REACTIONS (2)
  - VERTIGO [None]
  - VISION BLURRED [None]
